FAERS Safety Report 22626836 (Version 2)
Quarter: 2023Q2

REPORT INFORMATION
  Report Type: Spontaneous
  Country: US (occurrence: US)
  Receive Date: 20230622
  Receipt Date: 20230622
  Transmission Date: 20230722
  Serious: No
  Sender: FDA-Public Use
  Company Number: US-JNJFOC-20230633572

PATIENT
  Age: 57 Year
  Sex: Female

DRUGS (2)
  1. SYMTUZA [Suspect]
     Active Substance: COBICISTAT\DARUNAVIR\EMTRICITABINE\TENOFOVIR ALAFENAMIDE
     Indication: HIV infection
     Dosage: 800MG/150MG/200MG/10 MG
     Route: 048
  2. SYMTUZA [Suspect]
     Active Substance: COBICISTAT\DARUNAVIR\EMTRICITABINE\TENOFOVIR ALAFENAMIDE
     Route: 048

REACTIONS (6)
  - Product odour abnormal [Unknown]
  - Product dose omission issue [Unknown]
  - Dizziness [Unknown]
  - Dizziness [Unknown]
  - Palpitations [Unknown]
  - Renal pain [Unknown]
